FAERS Safety Report 22097797 (Version 1)
Quarter: 2023Q1

REPORT INFORMATION
  Report Type: Spontaneous
  Country: US (occurrence: US)
  Receive Date: 20230315
  Receipt Date: 20230315
  Transmission Date: 20230417
  Serious: No
  Sender: FDA-Public Use
  Company Number: US-BRISTOL-MYERS SQUIBB COMPANY-2023-037019

PATIENT
  Sex: Female

DRUGS (2)
  1. OPDIVO [Suspect]
     Active Substance: NIVOLUMAB
     Indication: Renal cancer
     Dosage: DOSE : UNAVAILABLE;     FREQ : UNAVAILABLE
  2. YERVOY [Suspect]
     Active Substance: IPILIMUMAB
     Indication: Renal cancer

REACTIONS (4)
  - Back pain [Unknown]
  - Chills [Unknown]
  - Peripheral coldness [Unknown]
  - Skin discolouration [Unknown]

NARRATIVE: CASE EVENT DATE: 20230308
